FAERS Safety Report 14922053 (Version 1)
Quarter: 2018Q2

REPORT INFORMATION
  Report Type: Spontaneous
  Country: US (occurrence: US)
  Receive Date: 20180522
  Receipt Date: 20180522
  Transmission Date: 20180711
  Serious: No
  Sender: FDA-Public Use
  Company Number: US-GLENMARK PHARMACEUTICALS-2018GMK031690

PATIENT

DRUGS (1)
  1. VIORELE [Suspect]
     Active Substance: DESOGESTREL\ETHINYL ESTRADIOL
     Indication: CONTRACEPTION
     Dosage: UNK
     Route: 065

REACTIONS (6)
  - Menstrual disorder [Unknown]
  - Metrorrhagia [Unknown]
  - Abdominal distension [Unknown]
  - Product substitution issue [Unknown]
  - Menstruation irregular [Unknown]
  - Weight increased [Unknown]
